FAERS Safety Report 14333542 (Version 6)
Quarter: 2021Q2

REPORT INFORMATION
  Report Type: Report from Study
  Country: HK (occurrence: HK)
  Receive Date: 20171228
  Receipt Date: 20210420
  Transmission Date: 20210716
  Serious: Yes (Hospitalization)
  Sender: FDA-Public Use
  Company Number: HK-DSJP-DSE-2017-154654

PATIENT

DRUGS (6)
  1. EDOXABAN [Suspect]
     Active Substance: EDOXABAN TOSYLATE
     Dosage: 30 MG, QD
     Route: 048
     Dates: start: 20180217
  2. DRONEDARONE [Concomitant]
     Active Substance: DRONEDARONE
     Dosage: 400 MG
  3. BETA BLOCKING AGENTS [Concomitant]
     Active Substance: UNSPECIFIED INGREDIENT
     Indication: ATRIAL FIBRILLATION
     Dosage: UNK, TID
     Dates: start: 20121114
  4. DRONEDARONE [Concomitant]
     Active Substance: DRONEDARONE
     Indication: ATRIAL FIBRILLATION
     Dosage: UNK, BID
     Dates: start: 20110302
  5. EDOXABAN [Suspect]
     Active Substance: EDOXABAN TOSYLATE
     Indication: ATRIAL FIBRILLATION
     Dosage: 60 MG, QD
     Route: 048
     Dates: start: 20171025, end: 20180216
  6. BETA BLOCKING AGENTS [Concomitant]
     Active Substance: UNSPECIFIED INGREDIENT
     Dosage: UNK, BID
     Dates: start: 20180117, end: 20180216

REACTIONS (2)
  - Palpitations [Recovered/Resolved]
  - Heavy menstrual bleeding [Recovered/Resolved with Sequelae]

NARRATIVE: CASE EVENT DATE: 20171031
